FAERS Safety Report 12282487 (Version 8)
Quarter: 2016Q4

REPORT INFORMATION
  Report Type: Report from Study
  Country: BR (occurrence: BR)
  Receive Date: 20160419
  Receipt Date: 20161201
  Transmission Date: 20170207
  Serious: Yes (Hospitalization)
  Sender: FDA-Public Use
  Company Number: PHHY2016BR016038

PATIENT
  Sex: Male
  Weight: 72 kg

DRUGS (3)
  1. EXJADE [Suspect]
     Active Substance: DEFERASIROX
     Dosage: 1 DF (5 MG/KG), QD
     Route: 048
  2. EXJADE [Suspect]
     Active Substance: DEFERASIROX
     Dosage: 2 DF (10 MG/KG), QD
     Route: 048
     Dates: start: 2015, end: 201601
  3. EXJADE [Suspect]
     Active Substance: DEFERASIROX
     Indication: SICKLE CELL ANAEMIA
     Dosage: 1 DF (5 MG/KG), QD
     Route: 048

REACTIONS (14)
  - Abdominal pain [Unknown]
  - Back pain [Unknown]
  - Hepatitis [Unknown]
  - Vomiting [Unknown]
  - Sickle cell anaemia with crisis [Unknown]
  - Malaise [Unknown]
  - Haemoglobin decreased [Unknown]
  - Pain [Unknown]
  - Sleep disorder due to general medical condition, insomnia type [Unknown]
  - Migraine [Unknown]
  - Pneumonia [Unknown]
  - Iron overload [Unknown]
  - Drug intolerance [Unknown]
  - Headache [Unknown]
